FAERS Safety Report 20802493 (Version 1)
Quarter: 2022Q2

REPORT INFORMATION
  Report Type: Spontaneous
  Country: US (occurrence: None)
  Receive Date: 20220509
  Receipt Date: 20220509
  Transmission Date: 20220721
  Serious: No
  Sender: FDA-Public Use
  Company Number: None

PATIENT
  Age: 65 Year
  Sex: Male

DRUGS (1)
  1. PIOGLITAZONE [Suspect]
     Active Substance: PIOGLITAZONE
     Dosage: FREQUENCY : DAILY;?
     Route: 048
     Dates: start: 20220131, end: 20220328

REACTIONS (4)
  - Oedema peripheral [None]
  - Abdominal distension [None]
  - Localised oedema [None]
  - Cardiac failure congestive [None]

NARRATIVE: CASE EVENT DATE: 20220329
